FAERS Safety Report 15843809 (Version 1)
Quarter: 2019Q1

REPORT INFORMATION
  Report Type: Spontaneous
  Country: US (occurrence: US)
  Receive Date: 20190118
  Receipt Date: 20190118
  Transmission Date: 20190417
  Serious: Yes (Other)
  Sender: FDA-Public Use
  Company Number: US-INSYS THERAPEUTICS, INC-INS201901-000300

PATIENT
  Sex: Female

DRUGS (7)
  1. SUBSYS [Suspect]
     Active Substance: FENTANYL
     Dates: start: 201312
  2. SUBSYS [Suspect]
     Active Substance: FENTANYL
     Dates: start: 201407
  3. ROXICODONE [Concomitant]
     Active Substance: OXYCODONE HYDROCHLORIDE
  4. SUBSYS [Suspect]
     Active Substance: FENTANYL
     Dates: start: 201311
  5. OXYCODONE [Concomitant]
     Active Substance: OXYCODONE
     Indication: PAIN
  6. SUBSYS [Suspect]
     Active Substance: FENTANYL
     Indication: OSTEOARTHRITIS
     Dates: start: 201308
  7. EXALGO [Concomitant]
     Active Substance: HYDROMORPHONE HYDROCHLORIDE

REACTIONS (11)
  - Coma [Unknown]
  - Depression [Unknown]
  - Hypopnoea [Unknown]
  - Withdrawal syndrome [Unknown]
  - Drug dependence [Unknown]
  - Cold sweat [Unknown]
  - Loss of consciousness [Unknown]
  - Pain [Unknown]
  - Suicidal ideation [Unknown]
  - Feeling abnormal [Unknown]
  - Injury [Unknown]
